FAERS Safety Report 4973875-5 (Version None)
Quarter: 2006Q2

REPORT INFORMATION
  Report Type: 
  Country: None (occurrence: None)
  Receive Date: 20060410
  Receipt Date: 20060404
  Transmission Date: 20061013
  Serious: Yes (Other)
  Sender: FDA-Public Use
  Company Number: CHPA2006US03478

PATIENT
  Age: 66 Year
  Sex: Male
  Weight: 86.2 kg

DRUGS (2)
  1. EXCEDRIN (MIGRAINE) [Suspect]
     Indication: HEADACHE
     Dosage: 1 DF, ONCE/SINGLE, ORAL
     Route: 048
     Dates: start: 20060404, end: 20060404
  2. EXCEDRIN EXTRA STRENGTH (NCH) (CAFFEINE CITRATE, ACETYLSALICYLIC ACID, [Suspect]
     Indication: HEADACHE
     Dosage: 1-7 TIMES A WEEK ORAL
     Route: 048

REACTIONS (3)
  - DIZZINESS [None]
  - DRUG ABUSER [None]
  - NERVOUSNESS [None]
